FAERS Safety Report 24900984 (Version 1)
Quarter: 2025Q1

REPORT INFORMATION
  Report Type: Spontaneous
  Country: US (occurrence: US)
  Receive Date: 20250129
  Receipt Date: 20250129
  Transmission Date: 20250409
  Serious: No
  Sender: PFIZER
  Company Number: US-PFIZER INC-202500017492

PATIENT
  Age: 78 Year
  Sex: Female
  Weight: 60.33 kg

DRUGS (1)
  1. XELJANZ [Suspect]
     Active Substance: TOFACITINIB CITRATE
     Indication: Rheumatoid arthritis
     Dosage: 5 MG, 2X/DAY, 5MG DOSE ON TWO A DAY

REACTIONS (2)
  - Weight decreased [Unknown]
  - Drug ineffective [Unknown]
